FAERS Safety Report 20169985 (Version 1)
Quarter: 2021Q4

REPORT INFORMATION
  Report Type: Other
  Country: US (occurrence: None)
  Receive Date: 20211210
  Receipt Date: 20211210
  Transmission Date: 20220303
  Serious: Yes (Other)
  Sender: FDA-Public Use
  Company Number: US-ROCHE-2973391

PATIENT
  Sex: Male
  Weight: 118.04 kg

DRUGS (1)
  1. OCREVUS [Suspect]
     Active Substance: OCRELIZUMAB
     Indication: Primary progressive multiple sclerosis
     Dosage: ON DAY 1 AND 15 THEN 600 MG SUBSEQUENTLY EVERY 6 MONTHS; DATE OF TREATMENT: 23-JAN-2020, 06-FEB-2020
     Route: 042

REACTIONS (4)
  - Cellulitis [Recovering/Resolving]
  - Multiple sclerosis relapse [Recovered/Resolved]
  - Skin ulcer [Recovered/Resolved]
  - Off label use [Unknown]

NARRATIVE: CASE EVENT DATE: 20200101
